FAERS Safety Report 18721091 (Version 3)
Quarter: 2021Q1

REPORT INFORMATION
  Report Type: Spontaneous
  Country: GB (occurrence: GB)
  Receive Date: 20210109
  Receipt Date: 20210217
  Transmission Date: 20210419
  Serious: Yes (Other)
  Sender: FDA-Public Use
  Company Number: GB-SHILPA MEDICARE LIMITED-SML-GB-2021-00003

PATIENT
  Age: 70 Year
  Sex: Male

DRUGS (5)
  1. DASATINIB. [Suspect]
     Active Substance: DASATINIB
     Indication: CHRONIC MYELOID LEUKAEMIA
     Dosage: UNK
     Route: 065
     Dates: start: 20120405, end: 20150201
  2. NILOTINIB [Suspect]
     Active Substance: NILOTINIB
     Indication: CHRONIC MYELOID LEUKAEMIA
     Dosage: UNK
     Route: 065
     Dates: start: 20160601, end: 20180105
  3. BOSUTINIB [Suspect]
     Active Substance: BOSUTINIB
     Indication: CHRONIC MYELOID LEUKAEMIA
     Dosage: UNK
     Route: 065
     Dates: start: 20180306, end: 20180501
  4. PONATINIB [Suspect]
     Active Substance: PONATINIB
     Indication: CHRONIC MYELOID LEUKAEMIA
     Dosage: UNK
     Route: 065
     Dates: start: 20180602, end: 20201101
  5. IMATINIB, UNKNOWN [Suspect]
     Active Substance: IMATINIB
     Indication: CHRONIC MYELOID LEUKAEMIA
     Dosage: UNK
     Route: 065

REACTIONS (5)
  - Clonal evolution [Unknown]
  - Pleural effusion [Unknown]
  - Loss of therapeutic response [Unknown]
  - Peripheral vascular disorder [Unknown]
  - Drug resistance [Unknown]
